FAERS Safety Report 5220205-X (Version None)
Quarter: 2007Q1

REPORT INFORMATION
  Report Type: 
  Country: None (occurrence: None)
  Receive Date: 20061201
  Receipt Date: 20060505
  Transmission Date: 20070707
  Serious: Yes (Other)
  Sender: FDA-Public Use
  Company Number: PHEH2006US05925

PATIENT
  Age: 59 Year
  Sex: Male
  Weight: 81.6 kg

DRUGS (1)
  1. LAMISIL [Suspect]
     Dosage: 250 MG, QD, ORAL
     Route: 048
     Dates: start: 20060205, end: 20060207

REACTIONS (2)
  - SKIN EXFOLIATION [None]
  - SKIN LESION [None]
